FAERS Safety Report 4430401-7 (Version None)
Quarter: 2004Q3

REPORT INFORMATION
  Report Type: 
  Country: None (occurrence: None)
  Receive Date: 20040820
  Receipt Date: 20040811
  Transmission Date: 20050211
  Serious: Yes (Death, Congenital Anomaly)
  Sender: FDA-Public Use
  Company Number: US-MERCK-0408USA01497

PATIENT
  Sex: Male

DRUGS (1)
  1. CUPRIMINE [Suspect]
     Indication: RHEUMATOID ARTHRITIS

REACTIONS (6)
  - CUTIS LAXA [None]
  - DEATH [None]
  - DRUG EXPOSURE DURING PREGNANCY [None]
  - GASTROINTESTINAL DISORDER [None]
  - INGUINAL HERNIA [None]
  - JOINT CONTRACTURE [None]
